FAERS Safety Report 20069987 (Version 1)
Quarter: 2021Q4

REPORT INFORMATION
  Report Type: Spontaneous
  Country: FR (occurrence: FR)
  Receive Date: 20211115
  Receipt Date: 20211115
  Transmission Date: 20220303
  Serious: Yes (Other)
  Sender: FDA-Public Use
  Company Number: FR-Orion Corporation ORION PHARMA-TREX2021-0054

PATIENT
  Age: 35 Year
  Sex: Female
  Weight: 87 kg

DRUGS (5)
  1. METHOTREXATE [Suspect]
     Active Substance: METHOTREXATE
     Indication: Rheumatoid arthritis
     Dosage: 12.5 MILLIGRAM, DECREASE IN DOSAGE AND SWITCHING TO SUBCUTANEOUS (12.5 MG)
     Route: 058
     Dates: start: 20201224, end: 20210122
  2. METHOTREXATE [Suspect]
     Active Substance: METHOTREXATE
     Indication: Rheumatoid arthritis
     Dosage: 15 MILLIGRAM, QW, TREATMENT AT LONG COURSE(15 MG, WEEKLY)
     Route: 048
     Dates: end: 20201224
  3. MIRENA [Suspect]
     Active Substance: LEVONORGESTREL
     Indication: Contraception
     Dosage: 20 MICROGRAM, QD2, 20 UG, DAILY
     Route: 015
  4. ORENCIA [Suspect]
     Active Substance: ABATACEPT
     Indication: Rheumatoid arthritis
     Dosage: 750 MILLIGRAM, MONTHLY
     Route: 041
     Dates: start: 20141103, end: 20210427
  5. FOLIC ACID [Concomitant]
     Active Substance: FOLIC ACID
     Dosage: UNK
     Route: 065

REACTIONS (1)
  - Breast cancer [Not Recovered/Not Resolved]

NARRATIVE: CASE EVENT DATE: 20210604
